FAERS Safety Report 14902921 (Version 1)
Quarter: 2018Q2

REPORT INFORMATION
  Report Type: Spontaneous
  Country: US (occurrence: US)
  Receive Date: 20180516
  Receipt Date: 20180516
  Transmission Date: 20180711
  Serious: No
  Sender: FDA-Public Use
  Company Number: US-SA-2017SA098729

PATIENT
  Sex: Female

DRUGS (2)
  1. SOLOSTAR [Concomitant]
     Active Substance: DEVICE
     Indication: TYPE 2 DIABETES MELLITUS
  2. LANTUS SOLOSTAR [Suspect]
     Active Substance: INSULIN GLARGINE
     Indication: TYPE 2 DIABETES MELLITUS
     Dosage: DAILY DOSE OF 20UNITS BUT USES AN ADDITIONAL DOSE IF SUGAR IS OVER 200MG/DL PER DOCTOR^S INSTRUCTION
     Route: 051

REACTIONS (4)
  - Fall [Unknown]
  - Nasopharyngitis [Not Recovered/Not Resolved]
  - Infection [Not Recovered/Not Resolved]
  - Blood glucose increased [Not Recovered/Not Resolved]
